FAERS Safety Report 6470182-9 (Version None)
Quarter: 2009Q4

REPORT INFORMATION
  Report Type: 
  Country: None (occurrence: None)
  Receive Date: 20091203
  Receipt Date: 20071228
  Transmission Date: 20100525
  Serious: Yes (Life-Threatening, Hospitalization, Other)
  Sender: FDA-Public Use
  Company Number: GB-ELI_LILLY_AND_COMPANY-GB200712005306

PATIENT
  Age: 15 Year
  Sex: Male
  Weight: 53.2 kg

DRUGS (1)
  1. STRATTERA [Suspect]
     Dosage: 85 MG, DAILY (1/D)
     Route: 048
     Dates: start: 20070822, end: 20071216

REACTIONS (1)
  - SUICIDAL IDEATION [None]
